FAERS Safety Report 4532270-3 (Version None)
Quarter: 2004Q4

REPORT INFORMATION
  Report Type: 
  Country: None (occurrence: None)
  Receive Date: 20041217
  Receipt Date: 20040831
  Transmission Date: 20050328
  Serious: Yes (Death)
  Sender: FDA-Public Use
  Company Number: 200421173BWH

PATIENT

DRUGS (1)
  1. TRASYLOL [Suspect]

REACTIONS (2)
  - COAGULOPATHY [None]
  - MEDICATION ERROR [None]
